FAERS Safety Report 5966166-7 (Version None)
Quarter: 2008Q4

REPORT INFORMATION
  Report Type: 
  Country: None (occurrence: None)
  Receive Date: 20081125
  Receipt Date: 20081117
  Transmission Date: 20090506
  Serious: Yes (Other)
  Sender: FDA-Public Use
  Company Number: GR-ROCHE-597953

PATIENT
  Age: 20 Year
  Sex: Male

DRUGS (1)
  1. ROACCUTAN [Suspect]
     Indication: ACNE
     Dosage: DOSAGE REGIMEN: ONE IN THE MORNING AND SECOND AT NOON.
     Route: 048
     Dates: start: 20081015

REACTIONS (1)
  - ERECTILE DYSFUNCTION [None]
